FAERS Safety Report 25201695 (Version 2)
Quarter: 2025Q2

REPORT INFORMATION
  Report Type: Spontaneous
  Country: JP (occurrence: JP)
  Receive Date: 20250416
  Receipt Date: 20250507
  Transmission Date: 20250716
  Serious: Yes (Hospitalization)
  Sender: AMGEN
  Company Number: JP-KISSEI-TV20250366_P_1

PATIENT
  Age: 68 Year
  Sex: Male
  Weight: 60.2 kg

DRUGS (5)
  1. TAVNEOS [Suspect]
     Active Substance: AVACOPAN
     Indication: Microscopic polyangiitis
     Dosage: 60 MG, QD
     Route: 048
  2. CYCLOPHOSPHAMIDE [Concomitant]
     Active Substance: CYCLOPHOSPHAMIDE
     Indication: Microscopic polyangiitis
     Dosage: 500 MG, QOW
     Route: 042
  3. PREDNISOLONE [Concomitant]
     Active Substance: PREDNISOLONE
     Indication: Microscopic polyangiitis
     Dosage: 60 MG, QD
     Route: 065
  4. PREDNISOLONE [Concomitant]
     Active Substance: PREDNISOLONE
     Dosage: 10 MG, QD
     Route: 065
  5. PREDNISOLONE [Concomitant]
     Active Substance: PREDNISOLONE
     Dosage: 7.5 MG, QD
     Route: 065

REACTIONS (2)
  - Drug-induced liver injury [Not Recovered/Not Resolved]
  - Jaundice [Not Recovered/Not Resolved]
